FAERS Safety Report 13314761 (Version 1)
Quarter: 2017Q1

REPORT INFORMATION
  Report Type: Report from Study
  Country: None (occurrence: CA)
  Receive Date: 20170309
  Receipt Date: 20170309
  Transmission Date: 20170428
  Serious: Yes (Other)
  Sender: FDA-Public Use
  Company Number: CA-ABBVIE-17K-028-1896130-00

PATIENT
  Sex: Female
  Weight: 100 kg

DRUGS (2)
  1. HUMIRA [Suspect]
     Active Substance: ADALIMUMAB
     Indication: CROHN^S DISEASE
     Route: 058
     Dates: start: 20160401, end: 20161229
  2. AZATHIOPRINE. [Concomitant]
     Active Substance: AZATHIOPRINE
     Indication: CROHN^S DISEASE
     Route: 048
     Dates: start: 201608

REACTIONS (9)
  - Abdominal adhesions [Unknown]
  - Gastrointestinal inflammation [Unknown]
  - Gastrointestinal disorder [Recovering/Resolving]
  - Chills [Unknown]
  - Intestinal stenosis [Unknown]
  - Ovarian cyst [Unknown]
  - Abdominal pain [Unknown]
  - Pyrexia [Unknown]
  - Anastomotic stenosis [Unknown]
